FAERS Safety Report 8429064 (Version 5)
Quarter: 2014Q3

REPORT INFORMATION
  Report Type: Report from Study
  Country: JP (occurrence: JP)
  Receive Date: 20120227
  Receipt Date: 20140916
  Transmission Date: 20150326
  Serious: Yes (Death, Other)
  Sender: FDA-Public Use
  Company Number: PHHY2012JP015837

PATIENT
  Age: 45 Year
  Sex: Female
  Weight: 65 kg

DRUGS (40)
  1. CLOZARIL [Suspect]
     Active Substance: CLOZAPINE
     Dosage: 75 MG, DAILY
     Route: 048
     Dates: start: 20110722, end: 20110723
  2. CLOZARIL [Suspect]
     Active Substance: CLOZAPINE
     Dosage: 200 MG, DAILY
     Route: 048
     Dates: start: 20110804, end: 20110804
  3. CLOZARIL [Suspect]
     Active Substance: CLOZAPINE
     Dosage: 500 MG, DAILY
     Route: 048
     Dates: start: 20110923, end: 20111201
  4. ACETAMINOPHEN. [Concomitant]
     Active Substance: ACETAMINOPHEN
     Indication: INFLUENZA
     Dosage: 400 MG, UNK
     Route: 048
     Dates: start: 20120219
  5. SENNOSIDE [Concomitant]
     Active Substance: SENNOSIDES
     Indication: CONSTIPATION
     Dosage: 24 MG, UNK
     Route: 048
  6. ROHYPNOL [Concomitant]
     Active Substance: FLUNITRAZEPAM
     Dosage: 2 MG, UNK
     Route: 048
  7. LEVOTOMIN [Concomitant]
     Active Substance: LEVOMEPROMAZINE
     Dosage: 50 MG, UNK
     Route: 048
     Dates: start: 20090301, end: 20110924
  8. RISPERIDONE. [Concomitant]
     Active Substance: RISPERIDONE
  9. CLOZARIL [Suspect]
     Active Substance: CLOZAPINE
     Dosage: 25 MG, DAILY
     Route: 048
     Dates: start: 20110709, end: 20110711
  10. CLOZARIL [Suspect]
     Active Substance: CLOZAPINE
     Dosage: 125 MG, DAILY
     Route: 048
     Dates: start: 20110726, end: 20110728
  11. TERBINAFINE HYDROCHLORIDE. [Concomitant]
     Active Substance: TERBINAFINE HYDROCHLORIDE
     Dosage: 2 MG, UNK
     Route: 048
  12. HALOPERIDOL. [Concomitant]
     Active Substance: HALOPERIDOL
     Dosage: UNK UKN, UNK
  13. CLOZARIL [Suspect]
     Active Substance: CLOZAPINE
     Dosage: 50 MG, DAILY
     Route: 048
     Dates: start: 20110712, end: 20110721
  14. CLOZARIL [Suspect]
     Active Substance: CLOZAPINE
     Dosage: 150 MG, DAILY
     Route: 048
     Dates: start: 20110729, end: 20110731
  15. MAGNESIUM OXIDE. [Concomitant]
     Active Substance: MAGNESIUM OXIDE
     Indication: CONSTIPATION
     Dosage: 1500 MG, UNK
     Route: 048
  16. SETOUS [Concomitant]
     Dosage: 150 MG, UNK
     Route: 048
  17. SETOUS [Concomitant]
     Dosage: 300 MG, UNK
     Route: 048
     Dates: start: 20091214
  18. CLOZARIL [Suspect]
     Active Substance: CLOZAPINE
     Indication: SCHIZOPHRENIA
     Dosage: 12.5 MG, DAILY
     Route: 048
     Dates: start: 20110708, end: 20110708
  19. MEDICON (DEXTROMETHORPHAN HYDROBROMIDE) [Concomitant]
     Active Substance: DEXTROMETHORPHAN HYDROBROMIDE
     Indication: INFLUENZA
     Dosage: 3 DF, FOR 5 DAYS
     Route: 048
     Dates: start: 20120219
  20. LEUCON [Concomitant]
     Dosage: 60 MG, UNK
     Route: 048
  21. FERROUS SULFATE [Concomitant]
     Active Substance: FERROUS SULFATE\FERROUS SULFATE, DRIED
     Dosage: 1 DF, UNK
     Route: 048
  22. PAXIL [Concomitant]
     Active Substance: PAROXETINE HYDROCHLORIDE
     Dosage: 20 MG, UNK
     Route: 048
  23. ARIPIPRAZOLE [Concomitant]
     Active Substance: ARIPIPRAZOLE
  24. CLOZARIL [Suspect]
     Active Substance: CLOZAPINE
     Dosage: 100 MG, DAILY
     Route: 048
     Dates: start: 20110724, end: 20110725
  25. CLOZARIL [Suspect]
     Active Substance: CLOZAPINE
     Dosage: 300 MG, DAILY
     Route: 048
     Dates: start: 20110805, end: 20110811
  26. CLOZARIL [Suspect]
     Active Substance: CLOZAPINE
     Dosage: 400 MG, DAILY
     Route: 048
     Dates: start: 20110819, end: 20110922
  27. BLADDERON [Concomitant]
     Active Substance: FLAVOXATE
     Dosage: 600 MG, UNK
     Route: 048
  28. LIMAS [Concomitant]
     Active Substance: LITHIUM CARBONATE
     Dosage: 400 MG, UNK
     Route: 048
  29. FERROUS SULFATE [Concomitant]
     Active Substance: FERROUS SULFATE\FERROUS SULFATE, DRIED
     Dosage: 105 MG, UNK
     Route: 048
  30. SETOUS [Concomitant]
     Dosage: 75 MG, UNK
     Route: 048
     Dates: end: 20110910
  31. OLANZAPINE. [Concomitant]
     Active Substance: OLANZAPINE
  32. CLOZARIL [Suspect]
     Active Substance: CLOZAPINE
     Dosage: 175 MG, DAILY
     Route: 048
     Dates: start: 20110801, end: 20110803
  33. CLOZARIL [Suspect]
     Active Substance: CLOZAPINE
     Dosage: 325 MG, DAILY
     Route: 048
     Dates: start: 20110812, end: 20110818
  34. DORAL [Concomitant]
     Active Substance: QUAZEPAM
     Dosage: 15 MG, UNK
     Route: 048
  35. WYPAX [Concomitant]
     Active Substance: LORAZEPAM
     Dosage: 3 MG, UNK
     Route: 048
     Dates: start: 20091214, end: 20111102
  36. ZYPREXA [Concomitant]
     Active Substance: OLANZAPINE
     Dosage: 10 MG, UNK
     Route: 048
  37. ZYPREXA [Concomitant]
     Active Substance: OLANZAPINE
     Dosage: 5 MG, UNK
     Route: 048
     Dates: end: 20110813
  38. RISPERDAL [Concomitant]
     Active Substance: RISPERIDONE
     Dosage: 8 MG, UNK
     Route: 048
     Dates: start: 20110824, end: 20110906
  39. CLOZARIL [Suspect]
     Active Substance: CLOZAPINE
     Dosage: 600 MG, DAILY
     Route: 048
     Dates: start: 20111202
  40. ZYPREXA [Concomitant]
     Active Substance: OLANZAPINE
     Dosage: 20 MG, UNK
     Route: 048
     Dates: start: 20040924

REACTIONS (18)
  - Asphyxia [Unknown]
  - Red blood cell count decreased [Unknown]
  - Pyrexia [Unknown]
  - Neutrophil count increased [Recovered/Resolved]
  - Pollakiuria [Unknown]
  - White blood cell count increased [Recovered/Resolved]
  - Lymphocyte count decreased [Unknown]
  - Leukopenia [Unknown]
  - Myocardial infarction [Fatal]
  - Aspiration [Unknown]
  - Intestinal obstruction [Unknown]
  - Diarrhoea [Unknown]
  - Gastrointestinal disorder [Unknown]
  - Influenza [Fatal]
  - Cardio-respiratory arrest [Fatal]
  - Blood glucose increased [Unknown]
  - Vomiting [Recovered/Resolved]
  - Haemoglobin decreased [Unknown]

NARRATIVE: CASE EVENT DATE: 20110804
